FAERS Safety Report 5152120-4 (Version None)
Quarter: 2006Q4

REPORT INFORMATION
  Report Type: 
  Country: None (occurrence: None)
  Receive Date: 20061116
  Receipt Date: 20061106
  Transmission Date: 20070319
  Serious: Yes (Other)
  Sender: FDA-Public Use
  Company Number: PHBS2006BR17223

PATIENT
  Age: 8 Year
  Sex: Male

DRUGS (1)
  1. STARFORM [Suspect]
     Dosage: NATE 240 / MET 1000 MG
     Route: 048
     Dates: start: 20061106

REACTIONS (4)
  - ACCIDENTAL EXPOSURE [None]
  - BODY TEMPERATURE INCREASED [None]
  - DEPRESSED LEVEL OF CONSCIOUSNESS [None]
  - LOSS OF CONSCIOUSNESS [None]
